FAERS Safety Report 6134318-1 (Version None)
Quarter: 2009Q1

REPORT INFORMATION
  Report Type: 
  Country: None (occurrence: None)
  Receive Date: 20090325
  Receipt Date: 20090311
  Transmission Date: 20090719
  Serious: Yes (Hospitalization, Other)
  Sender: FDA-Public Use
  Company Number: IE-000054

PATIENT
  Age: 6 Year
  Sex: Male

DRUGS (1)
  1. ZOMACTON (SOMATROPIN) INJECTION 2.6 MG [Suspect]
     Indication: PRADER-WILLI SYNDROME
     Dosage: 2.6 MG, SUBCUTANEOUS
     Route: 058

REACTIONS (1)
  - BLOOD GLUCOSE ABNORMAL [None]
